FAERS Safety Report 8986578 (Version 1)
Quarter: 2012Q4

REPORT INFORMATION
  Report Type: 
  Country: US (occurrence: US)
  Receive Date: 20121227
  Receipt Date: 20121227
  Transmission Date: 20130627
  Serious: Yes (Hospitalization)
  Sender: FDA-Public Use
  Company Number: US-AMGEN-USASP2012082896

PATIENT
  Age: 23 Year
  Sex: Male

DRUGS (2)
  1. ENBREL [Suspect]
     Indication: RHEUMATOID ARTHRITIS
     Dosage: UNK mg, 2 times/wk
     Dates: end: 201112
  2. HUMIRA [Concomitant]
     Dosage: UNK UNK, 2 times/wk
     Dates: start: 20111221, end: 20120920

REACTIONS (9)
  - Nodule [Recovered/Resolved]
  - Pain in extremity [Recovered/Resolved]
  - Post procedural complication [Recovered/Resolved]
  - Joint swelling [Recovered/Resolved]
  - Joint effusion [Recovered/Resolved]
  - Arthralgia [Recovered/Resolved]
  - Fatigue [Recovered/Resolved]
  - Asthenia [Recovered/Resolved]
  - Hepatic enzyme increased [Not Recovered/Not Resolved]
